FAERS Safety Report 11318809 (Version 3)
Quarter: 2021Q1

REPORT INFORMATION
  Report Type: Spontaneous
  Country: CA (occurrence: CA)
  Receive Date: 20150729
  Receipt Date: 20210309
  Transmission Date: 20210419
  Serious: Yes (Hospitalization)
  Sender: FDA-Public Use
  Company Number: CA-ROCHE-1614525

PATIENT
  Age: 5 Year
  Sex: Female

DRUGS (1)
  1. SOMATROPIN. [Suspect]
     Active Substance: SOMATROPIN
     Indication: GROWTH HORMONE DEFICIENCY
     Route: 058

REACTIONS (5)
  - Disease recurrence [Recovered/Resolved]
  - Craniopharyngioma [Recovered/Resolved]
  - Neoplasm recurrence [Recovered/Resolved]
  - Hydrocephalus [Recovered/Resolved]
  - Swelling face [Recovered/Resolved]
